FAERS Safety Report 11998231 (Version 1)
Quarter: 2016Q1

REPORT INFORMATION
  Report Type: Spontaneous
  Country: US (occurrence: None)
  Receive Date: 20160202
  Receipt Date: 20160202
  Transmission Date: 20160526
  Serious: No
  Sender: FDA-Public Use
  Company Number: None

PATIENT
  Sex: Male

DRUGS (1)
  1. LATANOPROST. [Suspect]
     Active Substance: LATANOPROST
     Indication: PRODUCT USED FOR UNKNOWN INDICATION
     Dosage: 0.005%, QD, L.EYE
     Dates: start: 20150813

REACTIONS (3)
  - Swelling [None]
  - Uveitis [None]
  - Visual impairment [None]

NARRATIVE: CASE EVENT DATE: 20110214
